FAERS Safety Report 17322109 (Version 1)
Quarter: 2020Q1

REPORT INFORMATION
  Report Type: Other
  Country: US (occurrence: US)
  Receive Date: 20200127
  Receipt Date: 20200127
  Transmission Date: 20200409
  Serious: Yes (Hospitalization)
  Sender: FDA-Public Use
  Company Number: US-ACORDA-ACO_160091_2019

PATIENT
  Age: 63 Year
  Sex: Female

DRUGS (3)
  1. AMPYRA [Suspect]
     Active Substance: DALFAMPRIDINE
     Indication: MULTIPLE SCLEROSIS
     Dosage: 10 MILLIGRAM, BID
     Route: 048
     Dates: start: 2019
  2. AMPYRA [Suspect]
     Active Substance: DALFAMPRIDINE
     Indication: GAIT DISTURBANCE
     Dosage: 10 MILLIGRAM, BID
     Route: 048
  3. MAYZENT [Concomitant]
     Active Substance: SIPONIMOD

REACTIONS (9)
  - Sleep terror [Not Recovered/Not Resolved]
  - Conjunctivitis [Unknown]
  - Hallucination [Not Recovered/Not Resolved]
  - Stress [Not Recovered/Not Resolved]
  - Fall [Unknown]
  - Drug ineffective [Unknown]
  - Pyrexia [Unknown]
  - Head injury [Unknown]
  - Urinary tract infection [Recovered/Resolved]

NARRATIVE: CASE EVENT DATE: 20190701
